FAERS Safety Report 8806014 (Version 1)
Quarter: 2012Q4

REPORT INFORMATION
  Report Type: Spontaneous
  Country: US (occurrence: None)
  Receive Date: 20120918
  Receipt Date: 20120918
  Transmission Date: 20130627
  Serious: No
  Sender: FDA-Public Use
  Company Number: None

PATIENT
  Sex: Female

DRUGS (1)
  1. AMPHETAMINE SALTS [Suspect]
     Indication: ADHD
     Route: 048

REACTIONS (4)
  - Nausea [None]
  - Asthenia [None]
  - Somnolence [None]
  - Vision blurred [None]
